FAERS Safety Report 4422688-1 (Version None)
Quarter: 2004Q3

REPORT INFORMATION
  Report Type: 
  Country: None (occurrence: None)
  Receive Date: 20040810
  Receipt Date: 20040802
  Transmission Date: 20050211
  Serious: Yes (Death, Life-Threatening, Hospitalization)
  Sender: FDA-Public Use
  Company Number: JP-MERCK-0408USA00381

PATIENT
  Age: 57 Year
  Sex: Male

DRUGS (3)
  1. DECADRON [Suspect]
     Indication: BRAIN OEDEMA
     Route: 048
     Dates: start: 20040401, end: 20040706
  2. PHENOBAL [Suspect]
     Indication: EPILEPSY
     Route: 048
     Dates: start: 20040401, end: 20040706
  3. SELBEX [Concomitant]
     Indication: PROPHYLAXIS AGAINST GASTROINTESTINAL ULCER
     Route: 048
     Dates: start: 20040401, end: 20040706

REACTIONS (3)
  - INFECTION [None]
  - SEPSIS [None]
  - TOXIC EPIDERMAL NECROLYSIS [None]
